FAERS Safety Report 8049962-4 (Version None)
Quarter: 2012Q1

REPORT INFORMATION
  Report Type: 
  Country: None (occurrence: None)
  Receive Date: 20120117
  Receipt Date: 20120111
  Transmission Date: 20120608
  Serious: Yes (Death, Hospitalization)
  Sender: FDA-Public Use
  Company Number: JP-PFIZER INC-2011245493

PATIENT
  Age: 77 Year
  Sex: Male
  Weight: 72 kg

DRUGS (2)
  1. SUTENT [Suspect]
     Dosage: 37.5 MG, 1X/DAY
     Dates: start: 20110728, end: 20110925
  2. SUTENT [Suspect]
     Indication: RENAL CELL CARCINOMA
     Dosage: 50 MG/DAY
     Route: 048
     Dates: start: 20110613, end: 20110727

REACTIONS (4)
  - SEPSIS [None]
  - DISEASE PROGRESSION [None]
  - RENAL CELL CARCINOMA [None]
  - PNEUMONIA [None]
